FAERS Safety Report 8139664-8 (Version None)
Quarter: 2012Q1

REPORT INFORMATION
  Report Type: 
  Country: None (occurrence: None)
  Receive Date: 20120215
  Receipt Date: 20120206
  Transmission Date: 20120608
  Serious: Yes (Death, Life-Threatening, Other)
  Sender: FDA-Public Use
  Company Number: JP-PFIZER INC-2012028033

PATIENT
  Age: 90 Year
  Sex: Male
  Weight: 45 kg

DRUGS (15)
  1. THEO-DUR [Concomitant]
     Dosage: 100 MG, 1X/DAY
     Route: 048
     Dates: end: 20100607
  2. SOLDEM 3A [Concomitant]
     Indication: FLUID REPLACEMENT
     Dosage: 500 ML, 2X/DAY
     Route: 041
     Dates: start: 20100603, end: 20100621
  3. RIFABUTIN [Suspect]
     Indication: TUBERCULOSIS
     Dosage: 300 MG, 1X/DAY
     Route: 048
     Dates: start: 20100511, end: 20100520
  4. MEROPENEM [Concomitant]
     Indication: TUBERCULOSIS
     Dosage: 500 MG, 2X/DAY
     Route: 041
     Dates: start: 20100604, end: 20100610
  5. AMBROXOL HYDROCHLORIDE [Concomitant]
     Indication: TUBERCULOSIS
     Dosage: 45 MG, 1X/DAY
     Route: 048
     Dates: end: 20100607
  6. ISONIAZID [Concomitant]
     Indication: TUBERCULOSIS
     Dosage: 300 MG, 1X/DAY
     Route: 048
     Dates: end: 20100607
  7. CARTEOLOL HYDROCHLORIDE [Concomitant]
     Dosage: 1 GTT, 1X/DAY
     Route: 047
     Dates: end: 20100607
  8. ETHAMBUTOL HYDROCHLORIDE [Concomitant]
     Indication: TUBERCULOSIS
     Dosage: 500 MG, 1X/DAY
     Route: 048
     Dates: end: 20100607
  9. RIFABUTIN [Suspect]
     Dosage: 150 MG, 1X/DAY
     Route: 048
     Dates: start: 20100521, end: 20100607
  10. SPELEAR [Concomitant]
     Indication: TUBERCULOSIS
     Dosage: 400 MG, 3X/DAY
     Route: 048
     Dates: end: 20100607
  11. ACDEAM [Concomitant]
     Indication: TUBERCULOSIS
     Dosage: 90 MG, 3X/DAY
     Route: 048
     Dates: end: 20100607
  12. LANSOPRAZOLE [Concomitant]
     Dosage: 15 MG, 1X/DAY
     Route: 048
     Dates: end: 20100607
  13. ZYRTEC [Concomitant]
     Dosage: 10 MG, 1X/DAY
     Route: 048
     Dates: end: 20100607
  14. GLORIAMIN [Concomitant]
     Indication: TUBERCULOSIS
     Dosage: 667 MG, 3X/DAY
     Route: 048
     Dates: end: 20100607
  15. PASIL [Concomitant]
     Indication: TUBERCULOSIS
     Dosage: 500 MG, 2X/DAY
     Route: 041
     Dates: start: 20100604, end: 20100607

REACTIONS (5)
  - DIARRHOEA [None]
  - MALAISE [None]
  - CEREBRAL INFARCTION [None]
  - LIVER FUNCTION TEST ABNORMAL [None]
  - TONIC CONVULSION [None]
